FAERS Safety Report 11670870 (Version 2)
Quarter: 2015Q4

REPORT INFORMATION
  Report Type: Spontaneous
  Country: US (occurrence: US)
  Receive Date: 20151028
  Receipt Date: 20151112
  Transmission Date: 20160304
  Serious: Yes (Other)
  Sender: FDA-Public Use
  Company Number: US-BH-2015054756

PATIENT
  Sex: Male

DRUGS (2)
  1. PREDNISOLONE. [Concomitant]
     Active Substance: PREDNISOLONE
  2. HIZENTRA [Suspect]
     Active Substance: HUMAN IMMUNOGLOBULIN G
     Indication: IMMUNODEFICIENCY COMMON VARIABLE

REACTIONS (16)
  - Renal cancer [Unknown]
  - Respiratory arrest [Unknown]
  - Visual impairment [Unknown]
  - Infection [Unknown]
  - Cough [Unknown]
  - Pain [Unknown]
  - Gastrointestinal motility disorder [Unknown]
  - Unevaluable event [Unknown]
  - Inflammation [Unknown]
  - Pneumonia [Unknown]
  - Cyst [Unknown]
  - Pulmonary mass [Unknown]
  - Stomatitis [Unknown]
  - Joint ankylosis [Unknown]
  - Respiratory disorder [Unknown]
  - Dysphonia [Unknown]
